FAERS Safety Report 5741461-5 (Version None)
Quarter: 2008Q2

REPORT INFORMATION
  Report Type: 
  Country: None (occurrence: None)
  Receive Date: 20080519
  Receipt Date: 20070411
  Transmission Date: 20081010
  Serious: No
  Sender: FDA-Public Use
  Company Number: US-BAYER-US-2007-013164

PATIENT
  Age: 73 Year
  Sex: Female
  Weight: 55 kg

DRUGS (1)
  1. ULTRAVIST 300 [Suspect]
     Indication: COMPUTERISED TOMOGRAM
     Dosage: UNIT DOSE: 120 ML
     Route: 042
     Dates: start: 20070405, end: 20070405

REACTIONS (3)
  - BLOOD PRESSURE DECREASED [None]
  - DYSPHONIA [None]
  - UPPER RESPIRATORY TRACT CONGESTION [None]
